FAERS Safety Report 6695131-X (Version None)
Quarter: 2010Q2

REPORT INFORMATION
  Report Type: 
  Country: None (occurrence: None)
  Receive Date: 20100423
  Receipt Date: 20100421
  Transmission Date: 20101027
  Serious: Yes (Death)
  Sender: FDA-Public Use
  Company Number: PHHY2010CA22090

PATIENT
  Sex: Male

DRUGS (11)
  1. CLOZARIL [Suspect]
     Indication: SCHIZOPHRENIA
     Dosage: 100 MG, UNK
     Route: 048
     Dates: start: 20000101, end: 20100328
  2. AVANDIA [Concomitant]
  3. DIVAPROEX [Concomitant]
     Dosage: 750 MG, QD
  4. CIPRALEX [Concomitant]
     Dosage: 10 MG, QD
  5. CRESTOR [Concomitant]
     Dosage: 20 MG, QD
  6. CLOPIXOL [Concomitant]
     Dosage: 200 MG, BIW
     Route: 030
  7. ALTACE [Concomitant]
     Dosage: 20 MG, QD
  8. CLONAZEPAM [Concomitant]
     Dosage: 0.5 MG, BID
  9. MACROBID [Concomitant]
     Dosage: 100 MG, BID
  10. ASPIRIN [Concomitant]
     Dosage: 81 MG, QD
  11. COGENTIN [Concomitant]
     Dosage: 2 MG, BID

REACTIONS (1)
  - HYPERTENSIVE HEART DISEASE [None]
